FAERS Safety Report 5360108-3 (Version None)
Quarter: 2007Q2

REPORT INFORMATION
  Report Type: 
  Country: None (occurrence: None)
  Receive Date: 20070530
  Receipt Date: 20070131
  Transmission Date: 20071010
  Serious: No
  Sender: FDA-Public Use
  Company Number: 2007PV029384

PATIENT
  Sex: Male

DRUGS (2)
  1. BYETTA [Suspect]
     Indication: DIABETES MELLITUS NON-INSULIN-DEPENDENT
     Dosage: 5 MCG;BID;SC
     Route: 058
     Dates: start: 20070111
  2. HUMULIN R [Concomitant]

REACTIONS (5)
  - CHILLS [None]
  - FATIGUE [None]
  - HICCUPS [None]
  - NAUSEA [None]
  - VOMITING [None]
